FAERS Safety Report 21645823 (Version 2)
Quarter: 2023Q2

REPORT INFORMATION
  Report Type: Report from Study
  Country: US (occurrence: US)
  Receive Date: 20221126
  Receipt Date: 20230420
  Transmission Date: 20230722
  Serious: No
  Sender: FDA-Public Use
  Company Number: US-ABBVIE-4180876

PATIENT
  Sex: Female

DRUGS (5)
  1. SKYRIZI [Suspect]
     Active Substance: RISANKIZUMAB-RZAA
     Indication: Psoriasis
     Dosage: :150 MG/ML: INJECT 1 PEN UNDER THE SKIN (SUBCUTANEOUS INJECTION) EVERY 3 (THREE) MONTHS; 150 MG/M...
     Route: 058
     Dates: start: 20220119
  2. SKYRIZI [Suspect]
     Active Substance: RISANKIZUMAB-RZAA
     Dosage: :150 MG/ML: INJECT 1 PEN UNDER THE SKIN (SUBCUTANEOUS INJECTION) EVERY 3 (THREE) MONTHS; 150 MG/M...
     Route: 058
  3. SKYRIZI [Suspect]
     Active Substance: RISANKIZUMAB-RZAA
     Route: 058
     Dates: start: 20220128
  4. KLONOPIN [Concomitant]
     Active Substance: CLONAZEPAM
     Indication: Product used for unknown indication
     Dosage: FORM STRENGTH: 1 MG
     Route: 048
  5. TRINTELLIX [Concomitant]
     Active Substance: VORTIOXETINE HYDROBROMIDE
     Indication: Product used for unknown indication
     Dosage: FORM STRENGTH: 20 MG
     Route: 048

REACTIONS (1)
  - Psoriasis [Not Recovered/Not Resolved]
